FAERS Safety Report 15730026 (Version 2)
Quarter: 2018Q4

REPORT INFORMATION
  Report Type: Spontaneous
  Country: BE (occurrence: BE)
  Receive Date: 20181217
  Receipt Date: 20181220
  Transmission Date: 20190205
  Serious: Yes (Hospitalization)
  Sender: FDA-Public Use
  Company Number: BE-SAKK-2018SA339355AA

PATIENT

DRUGS (1)
  1. LEMTRADA [Suspect]
     Active Substance: ALEMTUZUMAB
     Dosage: UNK
     Route: 041
     Dates: start: 201808

REACTIONS (4)
  - JC polyomavirus test positive [Unknown]
  - Nuclear magnetic resonance imaging abnormal [Unknown]
  - Optic neuritis [Unknown]
  - Lymphocyte count abnormal [Unknown]
